FAERS Safety Report 7551866-8 (Version None)
Quarter: 2011Q2

REPORT INFORMATION
  Report Type: 
  Country: None (occurrence: None)
  Receive Date: 20110616
  Receipt Date: 20110613
  Transmission Date: 20111010
  Serious: Yes (Life-Threatening, Hospitalization)
  Sender: FDA-Public Use
  Company Number: PHHY2011SI51506

PATIENT
  Sex: Male
  Weight: 100 kg

DRUGS (4)
  1. COCAINE [Concomitant]
  2. ZOLPIDEM [Suspect]
     Dosage: 3 DF, QD
     Route: 048
  3. ZOLPIDEM [Suspect]
     Indication: INSOMNIA
     Dosage: 10 MG, DAILY
     Route: 048
  4. ZOLPIDEM [Suspect]
     Dates: end: 20110511

REACTIONS (9)
  - MULTI-ORGAN FAILURE [None]
  - TOXICITY TO VARIOUS AGENTS [None]
  - INTENTIONAL OVERDOSE [None]
  - UNRESPONSIVE TO STIMULI [None]
  - CYANOSIS [None]
  - MIOSIS [None]
  - SOMNOLENCE [None]
  - DRUG DEPENDENCE [None]
  - HYPOVENTILATION [None]
